FAERS Safety Report 15324656 (Version 1)
Quarter: 2018Q3

REPORT INFORMATION
  Report Type: Spontaneous
  Country: US (occurrence: US)
  Receive Date: 20180828
  Receipt Date: 20180828
  Transmission Date: 20181010
  Serious: No
  Sender: FDA-Public Use
  Company Number: US-PFIZER INC-2018326096

PATIENT
  Age: 63 Year
  Sex: Male

DRUGS (1)
  1. SUTENT [Suspect]
     Active Substance: SUNITINIB MALATE
     Indication: METASTATIC RENAL CELL CARCINOMA
     Dosage: 50 MG, CYCLIC (50 MG DAILY FOR 2 WEEKS ON / 1 WEEK OFF)
     Dates: start: 20180808

REACTIONS (2)
  - Dyspepsia [Not Recovered/Not Resolved]
  - Oral mucosal blistering [Unknown]
